FAERS Safety Report 5713182-6 (Version None)
Quarter: 2008Q2

REPORT INFORMATION
  Report Type: 
  Country: None (occurrence: None)
  Receive Date: 20080422
  Receipt Date: 19870107
  Transmission Date: 20081010
  Serious: Yes (Death, Hospitalization, Other)
  Sender: FDA-Public Use
  Company Number: US-ROCHE-7747

PATIENT
  Sex: Male
  Weight: 46.8 kg

DRUGS (7)
  1. GANCICLOVIR SODIUM [Suspect]
     Route: 042
     Dates: start: 19861126, end: 19861127
  2. ISONIAZID [Concomitant]
     Dates: start: 19851201, end: 19861127
  3. ETHAMBUTOL HYDROCHLORIDE [Concomitant]
     Dates: start: 19860301, end: 19861127
  4. PYRAZINAMIDE [Concomitant]
     Dates: start: 19860301, end: 19861127
  5. KETOCONAZOLE [Concomitant]
     Dates: start: 19860925, end: 19861126
  6. NYSTATIN [Concomitant]
  7. ACYCLOVIR [Concomitant]
     Dates: start: 19861020, end: 19861127

REACTIONS (3)
  - AGITATION [None]
  - DEATH [None]
  - TACHYPNOEA [None]
